FAERS Safety Report 4421395-9 (Version None)
Quarter: 2004Q3

REPORT INFORMATION
  Report Type: 
  Country: None (occurrence: None)
  Receive Date: 20040706
  Receipt Date: 20040325
  Transmission Date: 20050211
  Serious: No
  Sender: FDA-Public Use
  Company Number: 234543

PATIENT
  Age: 13 Year
  Sex: Female
  Weight: 60 kg

DRUGS (2)
  1. NOVOLOG [Suspect]
     Indication: DIABETES MELLITUS INSULIN-DEPENDENT
     Dosage: SINGLE, SUBCUTANEOUS
     Route: 058
     Dates: start: 20030615, end: 20030615
  2. LANTUS [Concomitant]

REACTIONS (1)
  - HYPERSENSITIVITY [None]
